FAERS Safety Report 9295124 (Version 2)
Quarter: 2013Q3

REPORT INFORMATION
  Report Type: Report from Study
  Country: GB (occurrence: GB)
  Receive Date: 20130517
  Receipt Date: 20130821
  Transmission Date: 20140515
  Serious: Yes (Death, Hospitalization, Other)
  Sender: FDA-Public Use
  Company Number: PHFR2013GB001751

PATIENT
  Sex: Female

DRUGS (2)
  1. ZOMETA [Suspect]
     Indication: BONE DISORDER
     Dosage: 4 MG, WEEKLY
     Dates: start: 201301
  2. ZOMETA [Suspect]
     Dosage: 4 MG, WEEKLY
     Dates: start: 20130510

REACTIONS (8)
  - Death [Fatal]
  - Pulmonary oedema [Unknown]
  - Thrombosis [Unknown]
  - Fatigue [Unknown]
  - Nausea [Unknown]
  - Oedema peripheral [Unknown]
  - Musculoskeletal pain [Unknown]
  - Constipation [Unknown]
